FAERS Safety Report 25225038 (Version 1)
Quarter: 2025Q2

REPORT INFORMATION
  Report Type: Spontaneous
  Country: US (occurrence: US)
  Receive Date: 20250422
  Receipt Date: 20250422
  Transmission Date: 20250717
  Serious: Yes (Hospitalization)
  Sender: AUROBINDO
  Company Number: US-AUROBINDO-AUR-APL-2025-019625

PATIENT
  Age: 45 Year
  Sex: Male
  Weight: 140 kg

DRUGS (1)
  1. TERBINAFINE HYDROCHLORIDE [Suspect]
     Active Substance: TERBINAFINE HYDROCHLORIDE
     Indication: Fungal infection
     Dosage: 250 MILLIGRAM, ONCE A DAY
     Route: 048
     Dates: start: 20241113, end: 20241212

REACTIONS (4)
  - Hepatic enzyme increased [Not Recovered/Not Resolved]
  - Jaundice [Unknown]
  - Asthenia [Unknown]
  - Fatigue [Unknown]

NARRATIVE: CASE EVENT DATE: 20241229
